FAERS Safety Report 24014749 (Version 2)
Quarter: 2025Q2

REPORT INFORMATION
  Report Type: Spontaneous
  Country: CA (occurrence: CA)
  Receive Date: 20240626
  Receipt Date: 20250415
  Transmission Date: 20250716
  Serious: Yes (Hospitalization)
  Sender: MYLAN
  Company Number: CA-MYLANLABS-2024M1056098

PATIENT
  Age: 80 Year
  Sex: Female

DRUGS (92)
  1. REVATIO [Suspect]
     Active Substance: SILDENAFIL CITRATE
     Indication: Pulmonary arterial hypertension
     Dosage: 20 MILLIGRAM, TID (3 EVERY 1 DAYS)
  2. REVATIO [Suspect]
     Active Substance: SILDENAFIL CITRATE
     Dosage: 20 MILLIGRAM, TID (3 EVERY 1 DAYS)
     Route: 048
  3. REVATIO [Suspect]
     Active Substance: SILDENAFIL CITRATE
     Dosage: 20 MILLIGRAM, TID (3 EVERY 1 DAYS)
     Route: 048
  4. REVATIO [Suspect]
     Active Substance: SILDENAFIL CITRATE
     Dosage: 20 MILLIGRAM, TID (3 EVERY 1 DAYS)
  5. BISOPROLOL [Concomitant]
     Active Substance: BISOPROLOL
  6. BISOPROLOL [Concomitant]
     Active Substance: BISOPROLOL
     Route: 065
  7. BISOPROLOL [Concomitant]
     Active Substance: BISOPROLOL
     Route: 065
  8. BISOPROLOL [Concomitant]
     Active Substance: BISOPROLOL
  9. BUDESONIDE\FORMOTEROL FUMARATE [Concomitant]
     Active Substance: BUDESONIDE\FORMOTEROL FUMARATE
  10. BUDESONIDE\FORMOTEROL FUMARATE [Concomitant]
     Active Substance: BUDESONIDE\FORMOTEROL FUMARATE
     Route: 065
  11. BUDESONIDE\FORMOTEROL FUMARATE [Concomitant]
     Active Substance: BUDESONIDE\FORMOTEROL FUMARATE
     Route: 065
  12. BUDESONIDE\FORMOTEROL FUMARATE [Concomitant]
     Active Substance: BUDESONIDE\FORMOTEROL FUMARATE
  13. CALCIUM [Concomitant]
     Active Substance: CALCIUM
  14. CALCIUM [Concomitant]
     Active Substance: CALCIUM
     Route: 065
  15. CALCIUM [Concomitant]
     Active Substance: CALCIUM
     Route: 065
  16. CALCIUM [Concomitant]
     Active Substance: CALCIUM
  17. CANDESARTAN [Concomitant]
     Active Substance: CANDESARTAN
  18. CANDESARTAN [Concomitant]
     Active Substance: CANDESARTAN
     Route: 065
  19. CANDESARTAN [Concomitant]
     Active Substance: CANDESARTAN
     Route: 065
  20. CANDESARTAN [Concomitant]
     Active Substance: CANDESARTAN
  21. CARBIDOPA\LEVODOPA [Concomitant]
     Active Substance: CARBIDOPA\LEVODOPA
  22. CARBIDOPA\LEVODOPA [Concomitant]
     Active Substance: CARBIDOPA\LEVODOPA
     Route: 065
  23. CARBIDOPA\LEVODOPA [Concomitant]
     Active Substance: CARBIDOPA\LEVODOPA
     Route: 065
  24. CARBIDOPA\LEVODOPA [Concomitant]
     Active Substance: CARBIDOPA\LEVODOPA
  25. EZETIMIBE [Concomitant]
     Active Substance: EZETIMIBE
  26. EZETIMIBE [Concomitant]
     Active Substance: EZETIMIBE
     Route: 065
  27. EZETIMIBE [Concomitant]
     Active Substance: EZETIMIBE
     Route: 065
  28. EZETIMIBE [Concomitant]
     Active Substance: EZETIMIBE
  29. FUROSEMIDE [Concomitant]
     Active Substance: FUROSEMIDE
  30. FUROSEMIDE [Concomitant]
     Active Substance: FUROSEMIDE
     Route: 065
  31. FUROSEMIDE [Concomitant]
     Active Substance: FUROSEMIDE
     Route: 065
  32. FUROSEMIDE [Concomitant]
     Active Substance: FUROSEMIDE
  33. LORAZEPAM [Concomitant]
     Active Substance: LORAZEPAM
  34. LORAZEPAM [Concomitant]
     Active Substance: LORAZEPAM
     Route: 065
  35. LORAZEPAM [Concomitant]
     Active Substance: LORAZEPAM
     Route: 065
  36. LORAZEPAM [Concomitant]
     Active Substance: LORAZEPAM
  37. OTRIVIN [Concomitant]
     Active Substance: XYLOMETAZOLINE
  38. OTRIVIN [Concomitant]
     Active Substance: XYLOMETAZOLINE
     Route: 065
  39. OTRIVIN [Concomitant]
     Active Substance: XYLOMETAZOLINE
     Route: 065
  40. OTRIVIN [Concomitant]
     Active Substance: XYLOMETAZOLINE
  41. PANTOPRAZOLE [Concomitant]
     Active Substance: PANTOPRAZOLE
  42. PANTOPRAZOLE [Concomitant]
     Active Substance: PANTOPRAZOLE
     Route: 065
  43. PANTOPRAZOLE [Concomitant]
     Active Substance: PANTOPRAZOLE
     Route: 065
  44. PANTOPRAZOLE [Concomitant]
     Active Substance: PANTOPRAZOLE
  45. POTASSIUM CHLORIDE [Concomitant]
     Active Substance: POTASSIUM CHLORIDE
  46. POTASSIUM CHLORIDE [Concomitant]
     Active Substance: POTASSIUM CHLORIDE
     Route: 065
  47. POTASSIUM CHLORIDE [Concomitant]
     Active Substance: POTASSIUM CHLORIDE
     Route: 065
  48. POTASSIUM CHLORIDE [Concomitant]
     Active Substance: POTASSIUM CHLORIDE
  49. PREGABALIN [Concomitant]
     Active Substance: PREGABALIN
  50. PREGABALIN [Concomitant]
     Active Substance: PREGABALIN
     Route: 065
  51. PREGABALIN [Concomitant]
     Active Substance: PREGABALIN
     Route: 065
  52. PREGABALIN [Concomitant]
     Active Substance: PREGABALIN
  53. QUETIAPINE [Concomitant]
     Active Substance: QUETIAPINE
  54. QUETIAPINE [Concomitant]
     Active Substance: QUETIAPINE
     Route: 065
  55. QUETIAPINE [Concomitant]
     Active Substance: QUETIAPINE
     Route: 065
  56. QUETIAPINE [Concomitant]
     Active Substance: QUETIAPINE
  57. ROPINIROLE [Concomitant]
     Active Substance: ROPINIROLE
  58. ROPINIROLE [Concomitant]
     Active Substance: ROPINIROLE
     Route: 065
  59. ROPINIROLE [Concomitant]
     Active Substance: ROPINIROLE
     Route: 065
  60. ROPINIROLE [Concomitant]
     Active Substance: ROPINIROLE
  61. ALBUTEROL [Concomitant]
     Active Substance: ALBUTEROL
  62. ALBUTEROL [Concomitant]
     Active Substance: ALBUTEROL
     Route: 065
  63. ALBUTEROL [Concomitant]
     Active Substance: ALBUTEROL
     Route: 065
  64. ALBUTEROL [Concomitant]
     Active Substance: ALBUTEROL
  65. SENOKOT [Concomitant]
     Active Substance: SENNOSIDES
  66. SENOKOT [Concomitant]
     Active Substance: SENNOSIDES
     Route: 065
  67. SENOKOT [Concomitant]
     Active Substance: SENNOSIDES
     Route: 065
  68. SENOKOT [Concomitant]
     Active Substance: SENNOSIDES
  69. SERTRALINE [Concomitant]
     Active Substance: SERTRALINE HYDROCHLORIDE
  70. SERTRALINE [Concomitant]
     Active Substance: SERTRALINE HYDROCHLORIDE
     Route: 065
  71. SERTRALINE [Concomitant]
     Active Substance: SERTRALINE HYDROCHLORIDE
     Route: 065
  72. SERTRALINE [Concomitant]
     Active Substance: SERTRALINE HYDROCHLORIDE
  73. TRAZODONE [Concomitant]
     Active Substance: TRAZODONE HYDROCHLORIDE
  74. TRAZODONE [Concomitant]
     Active Substance: TRAZODONE HYDROCHLORIDE
     Route: 065
  75. TRAZODONE [Concomitant]
     Active Substance: TRAZODONE HYDROCHLORIDE
     Route: 065
  76. TRAZODONE [Concomitant]
     Active Substance: TRAZODONE HYDROCHLORIDE
  77. VITAMIN D NOS [Concomitant]
     Active Substance: CHOLECALCIFEROL\ERGOCALCIFEROL
  78. VITAMIN D NOS [Concomitant]
     Active Substance: CHOLECALCIFEROL\ERGOCALCIFEROL
     Route: 065
  79. VITAMIN D NOS [Concomitant]
     Active Substance: CHOLECALCIFEROL\ERGOCALCIFEROL
     Route: 065
  80. VITAMIN D NOS [Concomitant]
     Active Substance: CHOLECALCIFEROL\ERGOCALCIFEROL
  81. XARELTO [Concomitant]
     Active Substance: RIVAROXABAN
  82. XARELTO [Concomitant]
     Active Substance: RIVAROXABAN
     Route: 065
  83. XARELTO [Concomitant]
     Active Substance: RIVAROXABAN
     Route: 065
  84. XARELTO [Concomitant]
     Active Substance: RIVAROXABAN
  85. CARBIDOPA AND LEVODOPA [Concomitant]
     Active Substance: CARBIDOPA\LEVODOPA
  86. CARBIDOPA AND LEVODOPA [Concomitant]
     Active Substance: CARBIDOPA\LEVODOPA
     Route: 065
  87. CARBIDOPA AND LEVODOPA [Concomitant]
     Active Substance: CARBIDOPA\LEVODOPA
     Route: 065
  88. CARBIDOPA AND LEVODOPA [Concomitant]
     Active Substance: CARBIDOPA\LEVODOPA
  89. POTASSIUM [Concomitant]
     Active Substance: POTASSIUM
  90. POTASSIUM [Concomitant]
     Active Substance: POTASSIUM
     Route: 065
  91. POTASSIUM [Concomitant]
     Active Substance: POTASSIUM
     Route: 065
  92. POTASSIUM [Concomitant]
     Active Substance: POTASSIUM

REACTIONS (11)
  - Fall [Not Recovered/Not Resolved]
  - Aphonia [Not Recovered/Not Resolved]
  - Bronchitis [Not Recovered/Not Resolved]
  - Dysphonia [Not Recovered/Not Resolved]
  - Dyspnoea [Not Recovered/Not Resolved]
  - Fatigue [Not Recovered/Not Resolved]
  - Malaise [Not Recovered/Not Resolved]
  - Renal pain [Not Recovered/Not Resolved]
  - Dizziness [Not Recovered/Not Resolved]
  - Hospitalisation [Unknown]
  - Product dose omission issue [Not Recovered/Not Resolved]
